FAERS Safety Report 4922537-9 (Version None)
Quarter: 2006Q1

REPORT INFORMATION
  Report Type: 
  Country: None (occurrence: None)
  Receive Date: 20060224
  Receipt Date: 20060215
  Transmission Date: 20060701
  Serious: Yes (Hospitalization)
  Sender: FDA-Public Use
  Company Number: US-ROCHE-437030

PATIENT
  Age: 75 Year
  Sex: Female

DRUGS (3)
  1. BONIVA [Suspect]
     Indication: OSTEOPOROSIS
     Route: 048
     Dates: start: 20050615
  2. DIOVAN [Concomitant]
     Indication: HYPERTENSION
     Route: 048
  3. LOPRESSOR [Concomitant]
     Indication: HYPERTENSION
     Route: 048

REACTIONS (6)
  - CHEST PAIN [None]
  - DIZZINESS [None]
  - FALL [None]
  - HEART RATE IRREGULAR [None]
  - NAUSEA [None]
  - VOMITING [None]
